FAERS Safety Report 24315219 (Version 2)
Quarter: 2024Q3

REPORT INFORMATION
  Report Type: Spontaneous
  Country: US (occurrence: US)
  Receive Date: 20240913
  Receipt Date: 20240918
  Transmission Date: 20241016
  Serious: Yes (Life-Threatening, Hospitalization, Other)
  Sender: MERCK
  Company Number: US-009507513-2409USA003034

PATIENT
  Sex: Female

DRUGS (9)
  1. KEYTRUDA [Suspect]
     Active Substance: PEMBROLIZUMAB
     Indication: Breast cancer
     Dosage: UNK
     Route: 042
     Dates: start: 20230517
  2. KEYTRUDA [Suspect]
     Active Substance: PEMBROLIZUMAB
     Dosage: UNK
     Route: 042
     Dates: start: 20231009, end: 20240103
  3. PREDNISONE [Suspect]
     Active Substance: PREDNISONE
     Indication: Rash
     Dosage: UNK
     Dates: start: 2023
  4. PREDNISONE [Suspect]
     Active Substance: PREDNISONE
     Indication: Organising pneumonia
     Dosage: UNK
     Dates: start: 2024
  5. ELIQUIS [Concomitant]
     Active Substance: APIXABAN
     Indication: Thrombosis
  6. PREDNISONE [Concomitant]
     Active Substance: PREDNISONE
  7. SULFAMETHOXAZOLE\TRIMETHOPRIM [Concomitant]
     Active Substance: SULFAMETHOXAZOLE\TRIMETHOPRIM
  8. SERTRALINE [Concomitant]
     Active Substance: SERTRALINE HYDROCHLORIDE
  9. METFORMIN [Concomitant]
     Active Substance: METFORMIN HYDROCHLORIDE
     Indication: Blood glucose abnormal

REACTIONS (5)
  - Rash [Not Recovered/Not Resolved]
  - Organising pneumonia [Not Recovered/Not Resolved]
  - Thrombosis [Not Recovered/Not Resolved]
  - Blood glucose abnormal [Unknown]
  - Inappropriate schedule of product administration [Unknown]

NARRATIVE: CASE EVENT DATE: 20230101
